FAERS Safety Report 6326145-7 (Version None)
Quarter: 2009Q3

REPORT INFORMATION
  Report Type: 
  Country: None (occurrence: None)
  Receive Date: 20090824
  Receipt Date: 20090811
  Transmission Date: 20100115
  Serious: Yes (Other)
  Sender: FDA-Public Use
  Company Number: US-B.I. PHARMACEUTICALS,INC./RIDGEFIELD-2009-DE-05364GD

PATIENT
  Sex: Male

DRUGS (10)
  1. TIPRANAVIR [Suspect]
     Indication: HIV INFECTION
  2. DIDANOSINE [Suspect]
     Indication: HIV INFECTION
  3. ZALCITABINE [Suspect]
     Indication: HIV INFECTION
  4. STAVUDINE [Suspect]
     Indication: HIV INFECTION
  5. SAQUINAVIR [Suspect]
     Indication: HIV INFECTION
  6. NELFINAVIR [Suspect]
     Indication: HIV INFECTION
  7. RITONAVIR [Suspect]
     Indication: HIV INFECTION
  8. ADEFOVIR DIPIVOXIL KIT [Suspect]
     Indication: HIV INFECTION
  9. LOPINAVIR [Suspect]
     Indication: HIV INFECTION
  10. HYDROXYUREA [Suspect]
     Indication: HIV INFECTION

REACTIONS (1)
  - CHRONIC HEPATIC FAILURE [None]
